FAERS Safety Report 8922721 (Version 1)
Quarter: 2012Q4

REPORT INFORMATION
  Report Type: 
  Country: MX (occurrence: MX)
  Receive Date: 20121123
  Receipt Date: 20121123
  Transmission Date: 20130627
  Serious: Yes (Hospitalization)
  Sender: FDA-Public Use
  Company Number: PHHY2012MX106213

PATIENT
  Age: 95 Year
  Sex: Female

DRUGS (1)
  1. EXELON PATCH [Suspect]
     Indication: DEMENTIA ALZHEIMER^S TYPE
     Dosage: 4.6 mg, UNK
     Route: 062
     Dates: start: 20110805, end: 201206

REACTIONS (1)
  - Gastrointestinal infection [Not Recovered/Not Resolved]
